FAERS Safety Report 25554162 (Version 1)
Quarter: 2025Q3

REPORT INFORMATION
  Report Type: Spontaneous
  Country: US (occurrence: None)
  Receive Date: 20250714
  Receipt Date: 20250714
  Transmission Date: 20251021
  Serious: Yes (unspecified)
  Sender: FDA-CTU
  Company Number: None

PATIENT
  Age: 32 Year
  Sex: Female
  Weight: 58.5 kg

DRUGS (1)
  1. RETIN-A [Suspect]
     Active Substance: TRETINOIN
     Route: 061

REACTIONS (5)
  - Intracranial pressure increased [None]
  - Head discomfort [None]
  - Eye disorder [None]
  - Musculoskeletal stiffness [None]
  - Migraine [None]

NARRATIVE: CASE EVENT DATE: 20250711
